FAERS Safety Report 13822388 (Version 2)
Quarter: 2017Q3

REPORT INFORMATION
  Report Type: Spontaneous
  Country: US (occurrence: US)
  Receive Date: 20170801
  Receipt Date: 20170926
  Transmission Date: 20171127
  Serious: Yes (Other)
  Sender: FDA-Public Use
  Company Number: US-BAYER-2017-146734

PATIENT
  Age: 39 Year
  Sex: Female

DRUGS (4)
  1. MIRENA [Suspect]
     Active Substance: LEVONORGESTREL
     Indication: MENORRHAGIA
  2. VITAMIN C [Concomitant]
     Active Substance: ASCORBIC ACID
  3. IBU [Concomitant]
     Active Substance: IBUPROFEN
     Dosage: 3 DF, PRN
     Route: 048
  4. MIRENA [Suspect]
     Active Substance: LEVONORGESTREL
     Indication: CONTRACEPTION
     Dosage: 20 MCG/24HR, CONT
     Route: 015
     Dates: start: 20170719, end: 20170719

REACTIONS (2)
  - Device difficult to use [None]
  - Post procedural haemorrhage [None]

NARRATIVE: CASE EVENT DATE: 20170719
